FAERS Safety Report 8377537 (Version 2)
Quarter: 2013Q1

REPORT INFORMATION
  Report Type: Report from Study
  Country: US (occurrence: US)
  Receive Date: 20120128
  Receipt Date: 20130129
  Transmission Date: 20140127
  Serious: No
  Sender: FDA-Public Use
  Company Number: US-ABBOTT-11P-163-0838941-00

PATIENT
  Sex: Male
  Weight: 88.53 kg

DRUGS (11)
  1. HUMIRA 40 MG/0.8 ML PEN [Suspect]
     Indication: ANKYLOSING SPONDYLITIS
     Dates: start: 2008
  2. HUMIRA 40 MG/0.8 ML PEN [Suspect]
     Dates: start: 2009
  3. LISINOPRIL [Concomitant]
     Indication: HYPERTENSION
     Dosage: DAILY
  4. CARVEDILOL [Concomitant]
     Indication: PRODUCT USED FOR UNKNOWN INDICATION
  5. NIACIN [Concomitant]
     Indication: BLOOD CHOLESTEROL INCREASED
  6. RISPERIDONE [Concomitant]
     Indication: SCHIZOPHRENIA
  7. RISPERIDONE [Concomitant]
     Indication: MENTAL DISORDER
  8. BENZTROPINE [Concomitant]
     Indication: MENTAL DISORDER
  9. FLUVOXAMINE [Concomitant]
     Indication: DEPRESSION
     Dosage: 2 TABLETS BEFORE BED
  10. HYDROCODONE BITARTRATE AND ACETAMINOPHEN [Concomitant]
     Indication: PAIN
     Dosage: AS NEEDED
  11. MELATONIN [Concomitant]
     Indication: INSOMNIA

REACTIONS (5)
  - Vomiting [Not Recovered/Not Resolved]
  - Rhinorrhoea [Unknown]
  - Ocular hyperaemia [Unknown]
  - Ocular hyperaemia [Not Recovered/Not Resolved]
  - Hypersensitivity [Not Recovered/Not Resolved]
